FAERS Safety Report 24008524 (Version 4)
Quarter: 2024Q3

REPORT INFORMATION
  Report Type: Spontaneous
  Country: US (occurrence: US)
  Receive Date: 20240625
  Receipt Date: 20240712
  Transmission Date: 20241016
  Serious: Yes (Other)
  Sender: NOVARTIS
  Company Number: US-002147023-NVSC2024US128146

PATIENT
  Age: 40 Year
  Sex: Female

DRUGS (1)
  1. KESIMPTA [Suspect]
     Active Substance: OFATUMUMAB
     Indication: Product used for unknown indication
     Dosage: UNK
     Route: 065

REACTIONS (10)
  - Hypothermia [Unknown]
  - Central nervous system lesion [Unknown]
  - Ataxia [Unknown]
  - Coordination abnormal [Unknown]
  - Gait disturbance [Unknown]
  - Stress [Unknown]
  - Photosensitivity reaction [Unknown]
  - Alopecia [Unknown]
  - Headache [Unknown]
  - Drug ineffective [Unknown]
